FAERS Safety Report 5659401-6 (Version None)
Quarter: 2008Q1

REPORT INFORMATION
  Report Type: 
  Country: None (occurrence: None)
  Receive Date: 20080311
  Receipt Date: 20080222
  Transmission Date: 20080703
  Serious: Yes (Other)
  Sender: FDA-Public Use
  Company Number: GB-RANBAXY-2008RR-13311

PATIENT

DRUGS (34)
  1. CLARITHROMYCIN [Suspect]
     Indication: LOWER RESPIRATORY TRACT INFECTION
     Dosage: 500 MG, QD
     Route: 048
     Dates: start: 20080131, end: 20080205
  2. AMLODIPINE [Concomitant]
     Dosage: 5 MG, UNK
     Dates: start: 20040510
  3. AMOXICILLIN [Concomitant]
     Dosage: 250 MG, TID
     Dates: start: 20080110
  4. ATENOLOL TABLETS BP 50MG [Concomitant]
     Dosage: 25 MG, UNK
     Dates: start: 20030606
  5. BENDROFLUMETHIAZIDE [Concomitant]
  6. CINNARIZINE [Concomitant]
     Dosage: 15 MG, TID
     Dates: start: 20040413
  7. CIPROFLOXACIN [Concomitant]
     Dosage: 500 MG, BID
  8. CLOPIDOGREL [Concomitant]
     Dosage: 75 MG, UNK
     Dates: start: 20060530, end: 20071211
  9. CO-AMOXICLAV 500/125 MG TABLETS [Concomitant]
     Dosage: 1 DF, TID
     Dates: start: 20080117
  10. CO-CODAMOL [Concomitant]
     Dosage: 2 DF, QID
     Dates: start: 20040108, end: 20080122
  11. DAKTACORT [Concomitant]
     Dosage: UNK DF, BID
  12. DICLOFENAC SODIUM [Concomitant]
     Dosage: 50 MG, BID
     Dates: start: 20070824, end: 20080117
  13. DIHYDROCODEINE TABLETS [Concomitant]
     Dosage: 60 MG, TID
     Dates: start: 20050401
  14. DIPROBASE [Concomitant]
     Dosage: UNK DF, PRN
     Dates: start: 20020201
  15. FLUTICASONE [Concomitant]
     Dosage: 2 DF, BID
  16. FOLIC ACID TABLETS BP 5MG [Concomitant]
     Dosage: 5 MG, QD
     Dates: start: 20060808, end: 20071211
  17. HYDROCORTISONE [Concomitant]
     Dosage: 1 %, BID
     Dates: start: 20040928
  18. HYDROXYCHLOROQUINE SULPHATE [Concomitant]
     Dosage: 200 MG, UNK
     Dates: start: 20060324
  19. LOSARTAN POTASSIUM [Concomitant]
     Dosage: 100 MG, UNK
     Dates: start: 20060915, end: 20071004
  20. METHOTREXATE [Concomitant]
     Dosage: 15 MG, 1/WEEK
     Route: 058
     Dates: start: 20070306, end: 20080211
  21. MOVICOL [Concomitant]
     Dosage: 13.8 G, QD
     Dates: start: 20070302, end: 20080117
  22. NICOTINELL [Concomitant]
     Dosage: 14 MG, QD
     Dates: start: 20050708
  23. NICOTINELL [Concomitant]
     Dosage: 4 MG, UNK
     Dates: start: 20050626
  24. OTOMIZE [Concomitant]
     Dosage: 5 ML, TID
     Dates: start: 20060418
  25. OTOSPORIN [Concomitant]
     Dosage: 3 DF, TID
     Dates: end: 20060425
  26. OXERUTINS [Concomitant]
     Dosage: 250 MG, TID
     Dates: start: 20030213
  27. PROCHLORPERAZINE MALEATE [Concomitant]
     Dosage: 5 MG, TID
     Dates: start: 20070425
  28. PROCTOSEDYL [Concomitant]
     Dosage: UNK DF, BID
     Dates: start: 20050113
  29. SALBUTAMOL TABLETS BP 2MG [Concomitant]
     Dosage: 2 DF, QID
  30. SIMVASTATIN [Concomitant]
     Dosage: 40 MG, QD
     Dates: start: 20061207, end: 20071211
  31. SODIUM AUROTHIOMALATE [Concomitant]
     Dosage: 0.5 ML, UNK
     Dates: start: 20011214, end: 20071004
  32. SUDOCREM [Concomitant]
     Dosage: UNK DF, UNK
     Dates: start: 20051223, end: 20060530
  33. TRAMADOL HYDROCHLORIDE CAPSULES 50MG [Concomitant]
     Dosage: 50 MG, QID
     Dates: start: 20021128
  34. TRIMOVATE [Concomitant]
     Dosage: UNK DF, BID
     Dates: start: 20060817

REACTIONS (3)
  - COLD SWEAT [None]
  - DIZZINESS [None]
  - ORTHOSTATIC HYPOTENSION [None]
